FAERS Safety Report 8049096-9 (Version None)
Quarter: 2012Q1

REPORT INFORMATION
  Report Type: 
  Country: None (occurrence: None)
  Receive Date: 20120117
  Receipt Date: 20120112
  Transmission Date: 20120608
  Serious: Yes (Other)
  Sender: FDA-Public Use
  Company Number: US-AMGEN-USASP2011060753

PATIENT
  Age: 2 Year
  Sex: Female
  Weight: 11.1 kg

DRUGS (2)
  1. ENBREL [Suspect]
     Indication: JUVENILE ARTHRITIS
     Dosage: 10 MG, QWK
     Route: 058
     Dates: start: 20110830
  2. ENBREL [Suspect]

REACTIONS (2)
  - DECREASED ACTIVITY [None]
  - VIRAL INFECTION [None]
